FAERS Safety Report 4811519-3 (Version None)
Quarter: 2005Q4

REPORT INFORMATION
  Report Type: 
  Country: None (occurrence: None)
  Receive Date: 20051025
  Receipt Date: 20051011
  Transmission Date: 20060501
  Serious: Yes (Hospitalization)
  Sender: FDA-Public Use
  Company Number: 05-02-06295

PATIENT
  Age: 61 Year
  Sex: Female

DRUGS (4)
  1. CETUXIMAB (CETUXIMAB) [Suspect]
     Indication: SQUAMOUS CELL CARCINOMA
     Dosage: SEE IMAGE
     Route: 042
     Dates: start: 20050712, end: 20050712
  2. CETUXIMAB (CETUXIMAB) [Suspect]
     Indication: SQUAMOUS CELL CARCINOMA
     Dosage: SEE IMAGE
     Route: 042
     Dates: end: 20050831
  3. CISPLATIN [Suspect]
     Indication: SQUAMOUS CELL CARCINOMA
     Dosage: 100 MG/M2 Q 3WKS I.V.
     Route: 042
     Dates: start: 20050712, end: 20050823
  4. FLUOROURACIL [Suspect]
     Indication: SQUAMOUS CELL CARCINOMA
     Dosage: 1000 MG/M2 1 3 WKS I.V.
     Route: 042
     Dates: start: 20050712, end: 20050828

REACTIONS (5)
  - FATIGUE [None]
  - HYPOKALAEMIA [None]
  - HYPOMAGNESAEMIA [None]
  - HYPOPHOSPHATAEMIA [None]
  - PERFORMANCE STATUS DECREASED [None]
